FAERS Safety Report 7297745-5 (Version None)
Quarter: 2011Q1

REPORT INFORMATION
  Report Type: 
  Country: None (occurrence: None)
  Receive Date: 20110214
  Receipt Date: 20110214
  Transmission Date: 20110831
  Serious: Yes (Other)
  Sender: FDA-Public Use
  Company Number: None

PATIENT
  Age: 12 Year
  Sex: Male
  Weight: 41.7 kg

DRUGS (11)
  1. PROCHLORPERAZINE -COMPAZINE- [Concomitant]
  2. BACITRACIN ZINC [Concomitant]
  3. ACETAMINOPHEN -TYLENOL- TABLET [Concomitant]
  4. ESOMEPRAZOLE -NEXIUM- CAPSULE [Concomitant]
  5. PROMETHAZINE -PHENERGAN- [Concomitant]
  6. D5W-1/2 NS 1,000 ML WITH POTASSIUM CHLORIDE 10 MEQ, SODIUM BICARBONATE [Concomitant]
  7. PREDNISONE -DELTASONE- TABLET [Concomitant]
  8. HYDROCODONE-ACETAMINOPHEN -LORTAB- [Concomitant]
  9. CYCLOPHOSPHAMIDE [Suspect]
     Indication: BURKITT'S LYMPHOMA
     Dosage: 680 MG EVERY 12 HOURS IV
     Route: 042
     Dates: start: 20110208, end: 20110210
  10. MAXIPIME [Concomitant]
  11. ZOFRAN [Concomitant]

REACTIONS (5)
  - ERYTHEMA [None]
  - NASAL DISCOMFORT [None]
  - EYE SWELLING [None]
  - EYE IRRITATION [None]
  - LIP SWELLING [None]
